FAERS Safety Report 18592805 (Version 2)
Quarter: 2020Q4

REPORT INFORMATION
  Report Type: Report from Study
  Country: US (occurrence: US)
  Receive Date: 20201208
  Receipt Date: 20201211
  Transmission Date: 20210114
  Serious: Yes (Hospitalization)
  Sender: FDA-Public Use
  Company Number: US-EXELIXIS-CABO-20034843

PATIENT
  Age: 80 Year
  Sex: Female

DRUGS (2)
  1. CABOMETYX [Suspect]
     Active Substance: CABOZANTINIB S-MALATE
     Indication: RENAL CELL CARCINOMA
     Dosage: 60 MG, QD
     Dates: start: 20201016
  2. CABOMETYX [Suspect]
     Active Substance: CABOZANTINIB S-MALATE
     Dosage: 60 MG, QD

REACTIONS (7)
  - Diarrhoea [Recovering/Resolving]
  - Taste disorder [Unknown]
  - Constipation [Unknown]
  - Blood pressure systolic increased [Recovered/Resolved]
  - Oesophageal disorder [Unknown]
  - Dysphonia [Unknown]
  - Back pain [Unknown]

NARRATIVE: CASE EVENT DATE: 20201119
